FAERS Safety Report 8962674 (Version 1)
Quarter: 2012Q4

REPORT INFORMATION
  Report Type: 
  Country: RS (occurrence: RS)
  Receive Date: 20121213
  Receipt Date: 20121213
  Transmission Date: 20130627
  Serious: Yes (Hospitalization, Other)
  Sender: FDA-Public Use
  Company Number: RS-MUTUAL PHARMACEUTICAL COMPANY, INC.-MTDZ20120002

PATIENT
  Age: 30 Year
  Sex: Female

DRUGS (9)
  1. METRONIDAZOLE [Suspect]
     Indication: CLOSTRIDIUM DIFFICILE INFECTION
     Route: 065
  2. TACROLIMUS [Suspect]
     Indication: IMMUNOSUPPRESSION
     Route: 065
  3. TACROLIMUS [Suspect]
     Route: 065
  4. TACROLIMUS [Suspect]
     Route: 065
  5. TACROLIMUS [Suspect]
     Route: 065
  6. MYCOPHENOLATE MOFETIL [Concomitant]
     Indication: IMMUNOSUPPRESSION
     Route: 065
  7. PREDNISONE [Concomitant]
     Indication: IMMUNOSUPPRESSION
     Route: 065
  8. CARVEDILOL [Concomitant]
     Indication: DRUG USE FOR UNKNOWN INDICATION
     Route: 065
  9. METHYLDOPA [Concomitant]
     Indication: DRUG USE FOR UNKNOWN INDICATION
     Route: 065

REACTIONS (7)
  - Immunosuppressant drug level increased [Recovered/Resolved]
  - Drug interaction [Recovered/Resolved]
  - Metabolic acidosis [Recovering/Resolving]
  - Blood creatinine increased [Recovered/Resolved]
  - Hypomagnesaemia [Recovered/Resolved]
  - Dehydration [Unknown]
  - Asthenia [Unknown]
